FAERS Safety Report 11637142 (Version 1)
Quarter: 2015Q4

REPORT INFORMATION
  Report Type: Spontaneous
  Country: US (occurrence: None)
  Receive Date: 20151015
  Receipt Date: 20151015
  Transmission Date: 20160304
  Serious: Yes (Other)
  Sender: FDA-Public Use
  Company Number: None

PATIENT
  Age: 73 Year
  Sex: Male
  Weight: 73.48 kg

DRUGS (1)
  1. METOCLOPRAMIDE. [Suspect]
     Active Substance: METOCLOPRAMIDE
     Indication: GASTROOESOPHAGEAL REFLUX DISEASE
     Dosage: 10MG  FOUR TIMES DAILY TAKEN BY MOUTH
     Route: 048
     Dates: start: 20151001, end: 20151007

REACTIONS (2)
  - Retinal disorder [None]
  - Photopsia [None]

NARRATIVE: CASE EVENT DATE: 20151001
